FAERS Safety Report 9009487 (Version 1)
Quarter: 2013Q1

REPORT INFORMATION
  Report Type: Spontaneous
  Country: DE (occurrence: DE)
  Receive Date: 20130110
  Receipt Date: 20130110
  Transmission Date: 20140127
  Serious: Yes (Other)
  Sender: FDA-Public Use
  Company Number: PHHY2013DE001958

PATIENT
  Age: 47 Year
  Sex: Female

DRUGS (3)
  1. TACROLIMUS [Suspect]
     Indication: IMMUNOSUPPRESSION
     Dosage: TARGET LEVEL: 5-8NG/ML
  2. MYCOPHENOLATE MOFETIL [Concomitant]
     Indication: IMMUNOSUPPRESSION
  3. PREDNISONE [Concomitant]
     Indication: IMMUNOSUPPRESSION

REACTIONS (8)
  - Parkinsonism [Unknown]
  - Akinesia [Recovered/Resolved]
  - Somnolence [Recovered/Resolved]
  - Hypokinesia [Recovered/Resolved]
  - Muscle rigidity [Recovered/Resolved]
  - Hypopnoea [Recovered/Resolved]
  - Tremor [Unknown]
  - Immunosuppressant drug level increased [Unknown]
